FAERS Safety Report 10228504 (Version 2)
Quarter: 2014Q3

REPORT INFORMATION
  Report Type: Spontaneous
  Country: US (occurrence: US)
  Receive Date: 20140610
  Receipt Date: 20140827
  Transmission Date: 20150326
  Serious: Yes (Hospitalization)
  Sender: FDA-Public Use
  Company Number: US-BAYER-2014-084882

PATIENT
  Age: 49 Year
  Sex: Female
  Weight: 41.72 kg

DRUGS (2)
  1. YAZ [Suspect]
     Active Substance: DROSPIRENONE\ETHINYL ESTRADIOL
     Dosage: UNK
     Dates: start: 2006
  2. SIMVASTATIN. [Concomitant]
     Active Substance: SIMVASTATIN

REACTIONS (7)
  - Ovarian cyst [None]
  - Injury [None]
  - Pain [None]
  - General physical health deterioration [None]
  - Deep vein thrombosis [None]
  - Emotional distress [None]
  - Poor peripheral circulation [None]

NARRATIVE: CASE EVENT DATE: 200712
